FAERS Safety Report 10420227 (Version 1)
Quarter: 2014Q3

REPORT INFORMATION
  Report Type: Report from Study
  Country: US (occurrence: None)
  Receive Date: 20140804
  Receipt Date: 20140804
  Transmission Date: 20150326
  Serious: Yes (Other)
  Sender: FDA-Public Use
  Company Number: 2013US008747

PATIENT
  Age: 80 Year
  Sex: Male
  Weight: 51.7 kg

DRUGS (7)
  1. GLASSIA [Suspect]
     Active Substance: .ALPHA.1-PROTEINASE INHIBITOR HUMAN
     Indication: ALPHA-1 ANTI-TRYPSIN DEFICIENCY
     Route: 042
     Dates: start: 201112
  2. SYMBICORT [Concomitant]
     Active Substance: BUDESONIDE\FORMOTEROL FUMARATE DIHYDRATE
  3. OXYGEN (OXYGEN) [Concomitant]
     Active Substance: OXYGEN
  4. PREDNISONE (PREDNISONE) [Concomitant]
     Active Substance: PREDNISONE
  5. PROVENTIL /00139501/ (SALBUTAMOL) [Concomitant]
  6. ALBUTEROL /00139501/ (SALBUTAMOL) INHALATION GAS [Concomitant]
  7. SPIRIVA [Concomitant]
     Active Substance: TIOTROPIUM BROMIDE MONOHYDRATE

REACTIONS (2)
  - Cataract [None]
  - Weight decreased [None]

NARRATIVE: CASE EVENT DATE: 201301
